FAERS Safety Report 4383914-0 (Version None)
Quarter: 2004Q2

REPORT INFORMATION
  Report Type: 
  Country: None (occurrence: None)
  Receive Date: 20040621
  Receipt Date: 20040525
  Transmission Date: 20050107
  Serious: Yes (Hospitalization)
  Sender: FDA-Public Use
  Company Number: 2004US000595

PATIENT
  Age: 19 Year
  Sex: Male
  Weight: 90 kg

DRUGS (9)
  1. PROGRAF [Suspect]
     Indication: RENAL TRANSPLANT
     Dosage: 1.50 MG, BID, ORAL
     Route: 048
     Dates: start: 20020101
  2. PROTONIX [Suspect]
     Dates: start: 20040501
  3. ORTHOCLONE OKT3 [Concomitant]
  4. SOLU-MEDROL [Concomitant]
  5. OCTREOTIDE ACETATE [Concomitant]
  6. CELLCEPT [Concomitant]
  7. HYDROCORTISONE [Concomitant]
  8. ESCITALOPRAM (LEXAPRO) (ESCITALOPRAM) [Concomitant]
  9. BACTRIM [Concomitant]

REACTIONS (5)
  - DIARRHOEA HAEMORRHAGIC [None]
  - DRUG INTERACTION [None]
  - IMMUNOSUPPRESSANT DRUG LEVEL INCREASED [None]
  - KIDNEY TRANSPLANT REJECTION [None]
  - TREATMENT NONCOMPLIANCE [None]
